FAERS Safety Report 8193200-9 (Version None)
Quarter: 2012Q1

REPORT INFORMATION
  Report Type: 
  Country: None (occurrence: None)
  Receive Date: 20120308
  Receipt Date: 20120302
  Transmission Date: 20120608
  Serious: Yes (Other)
  Sender: FDA-Public Use
  Company Number: DE-ASTELLAS-2012EU001631

PATIENT
  Sex: Female

DRUGS (6)
  1. BISOPROLOL FUMARATE [Concomitant]
     Dosage: UNK
     Route: 065
  2. OLMESARTAN MEDOXOMIL [Concomitant]
     Dosage: UNK
     Route: 065
  3. SIMVASTATIN [Concomitant]
     Dosage: UNK
     Route: 065
  4. VESICARE [Suspect]
     Indication: BLADDER DISORDER
  5. ASPIRIN [Concomitant]
     Dosage: UNK
     Route: 065
  6. VESICARE [Suspect]
     Indication: HYPERTONIC BLADDER
     Dosage: 10 MG, UID/QD
     Route: 048

REACTIONS (5)
  - DYSPEPSIA [None]
  - HELICOBACTER INFECTION [None]
  - CONSTIPATION [None]
  - CHEST DISCOMFORT [None]
  - DRY MOUTH [None]
